FAERS Safety Report 7968605-9 (Version None)
Quarter: 2011Q4

REPORT INFORMATION
  Report Type: 
  Country: None (occurrence: None)
  Receive Date: 20111209
  Receipt Date: 20111206
  Transmission Date: 20120403
  Serious: No
  Sender: FDA-Public Use
  Company Number: US-B.I. PHARMACEUTICALS,INC./RIDGEFIELD-2011-BP-27557BP

PATIENT
  Sex: Male

DRUGS (3)
  1. CARDURA [Concomitant]
     Indication: HYPERTENSION
     Dates: start: 20111001
  2. UNSPECIFIED INHALERS [Concomitant]
     Indication: CHRONIC OBSTRUCTIVE PULMONARY DISEASE
  3. PRADAXA [Suspect]
     Indication: ATRIAL FIBRILLATION
     Dosage: 300 MG
     Route: 048
     Dates: start: 20111101

REACTIONS (1)
  - MUSCULOSKELETAL STIFFNESS [None]
